FAERS Safety Report 18810207 (Version 1)
Quarter: 2021Q1

REPORT INFORMATION
  Report Type: Spontaneous
  Country: GB (occurrence: GB)
  Receive Date: 20210129
  Receipt Date: 20210129
  Transmission Date: 20210419
  Serious: Yes (Other)
  Sender: FDA-Public Use
  Company Number: GB-PRINSTON PHARMACEUTICAL INC.-2021PRN00027

PATIENT
  Age: 90 Year
  Sex: Female

DRUGS (2)
  1. AMILORIDE [Concomitant]
     Active Substance: AMILORIDE
     Dosage: 5 MG, 1X/DAY
     Route: 065
     Dates: start: 1979
  2. HYDROCHLOROTHIAZIDE. [Suspect]
     Active Substance: HYDROCHLOROTHIAZIDE
     Indication: HYPERTENSION
     Dosage: 50 MG, 1X/DAY
     Route: 065
     Dates: start: 1979

REACTIONS (1)
  - Squamous cell carcinoma [Unknown]

NARRATIVE: CASE EVENT DATE: 2011
